FAERS Safety Report 20207187 (Version 1)
Quarter: 2021Q4

REPORT INFORMATION
  Report Type: Spontaneous
  Country: US (occurrence: None)
  Receive Date: 20211218
  Receipt Date: 20211218
  Transmission Date: 20220304
  Serious: No
  Sender: FDA-Public Use
  Company Number: None

PATIENT
  Sex: Male
  Weight: 77.9 kg

DRUGS (1)
  1. RADIUM RA-223 DICHLORIDE [Suspect]
     Active Substance: RADIUM RA-223 DICHLORIDE

REACTIONS (4)
  - Anaemia [None]
  - Fatigue [None]
  - Platelet count decreased [None]
  - Disease progression [None]

NARRATIVE: CASE EVENT DATE: 20211123
